FAERS Safety Report 5051277-3 (Version None)
Quarter: 2006Q3

REPORT INFORMATION
  Report Type: 
  Country: None (occurrence: None)
  Receive Date: 20060714
  Receipt Date: 20060707
  Transmission Date: 20061208
  Serious: Yes (Hospitalization, Other)
  Sender: FDA-Public Use
  Company Number: AU-AVENTIS-200617119GDDC

PATIENT
  Age: 53 Year
  Sex: Female
  Weight: 120 kg

DRUGS (6)
  1. ARAVA [Suspect]
     Indication: RHEUMATOID ARTHRITIS
     Route: 048
     Dates: start: 20041227
  2. KARVEZIDE [Concomitant]
     Dosage: DOSE: UNK
  3. ENDONE [Concomitant]
     Dosage: DOSE: UNK
  4. VALIUM [Concomitant]
  5. AVAPRO [Concomitant]
  6. HUMIRA [Concomitant]
     Dosage: DOSE: UNK

REACTIONS (2)
  - HYPERTENSION [None]
  - MYOCARDIAL INFARCTION [None]
